FAERS Safety Report 21017939 (Version 1)
Quarter: 2022Q2

REPORT INFORMATION
  Report Type: Spontaneous
  Country: US (occurrence: US)
  Receive Date: 20220628
  Receipt Date: 20220628
  Transmission Date: 20220720
  Serious: No
  Sender: FDA-Public Use
  Company Number: US-PFIZER INC-202200894348

PATIENT
  Age: 56 Year
  Sex: Female
  Weight: 88.45 kg

DRUGS (1)
  1. PAXLOVID [Suspect]
     Active Substance: NIRMATRELVIR\RITONAVIR
     Indication: COVID-19 treatment
     Dosage: 3 DF, 2X/DAY (2 150 MG OF NIRMATRELVIR AND 100 MG OF RITONAVIR. 3 IN THE MORNING AND 3 AT NIGHT)
     Route: 048
     Dates: start: 20220620

REACTIONS (3)
  - Dysgeusia [Not Recovered/Not Resolved]
  - Vertigo [Not Recovered/Not Resolved]
  - Headache [Not Recovered/Not Resolved]

NARRATIVE: CASE EVENT DATE: 20220601
